FAERS Safety Report 19294941 (Version 1)
Quarter: 2021Q2

REPORT INFORMATION
  Report Type: Other
  Country: NL (occurrence: FR)
  Receive Date: 20210524
  Receipt Date: 20210524
  Transmission Date: 20210717
  Serious: No
  Sender: FDA-Public Use
  Company Number: NL-SIEMENS HEALTHCARE LIMITED-PET-000007-2020

PATIENT
  Age: 39 Year
  Sex: Female

DRUGS (1)
  1. FLUORODEOXYGLUCOSE 18F [Suspect]
     Active Substance: FLUDEOXYGLUCOSE F-18
     Indication: POSITRON EMISSION TOMOGRAM
     Dosage: 176 MEGABECQUEREL
     Route: 041
     Dates: start: 20190829, end: 20190829

REACTIONS (1)
  - Injection site extravasation [Recovered/Resolved]

NARRATIVE: CASE EVENT DATE: 20190829
